FAERS Safety Report 24157953 (Version 2)
Quarter: 2024Q3

REPORT INFORMATION
  Report Type: Report from Study
  Country: US (occurrence: US)
  Receive Date: 20240731
  Receipt Date: 20240917
  Transmission Date: 20241017
  Serious: Yes (Other)
  Sender: OTSUKA
  Company Number: US-OTSUKA-2024_012172

PATIENT
  Age: 59 Year
  Sex: Female
  Weight: 81.2 kg

DRUGS (15)
  1. TOLVAPTAN [Suspect]
     Active Substance: TOLVAPTAN
     Indication: Congenital cystic kidney disease
     Dosage: 45 MG
     Route: 065
     Dates: start: 20240405
  2. TOLVAPTAN [Suspect]
     Active Substance: TOLVAPTAN
     Dosage: 15 MG
     Route: 065
     Dates: start: 20240405
  3. PROVENTIL HFA [Concomitant]
     Active Substance: ALBUTEROL SULFATE
     Indication: Dyspnoea
     Dosage: INHALE 2 PUFFS EVERY 4 HOURS AS NEEDED
     Route: 065
  4. NORVASC [Concomitant]
     Active Substance: AMLODIPINE BESYLATE
     Indication: Product used for unknown indication
     Dosage: 1 DF, QD
     Route: 048
  5. WELLBUTRIN [Concomitant]
     Active Substance: BUPROPION HYDROCHLORIDE
     Indication: Product used for unknown indication
     Dosage: 150 MG, QD (XL)
     Route: 048
  6. KLONOPIN [Concomitant]
     Active Substance: CLONAZEPAM
     Indication: Product used for unknown indication
     Dosage: 1 DF, AS NECESSARY (EVERY 8 HOURS)
     Route: 048
  7. SYNTHROID [Concomitant]
     Active Substance: LEVOTHYROXINE SODIUM
     Indication: Product used for unknown indication
     Dosage: 50 ?G, QD
     Route: 048
  8. MELATONIN [Concomitant]
     Active Substance: MELATONIN
     Indication: Product used for unknown indication
     Dosage: 5 MG, QD
     Route: 048
  9. SODIUM BICARBONATE [Concomitant]
     Active Substance: SODIUM BICARBONATE
     Indication: Product used for unknown indication
     Dosage: 2 DF, QD (IN THE MORNING) (1300 MG)
     Route: 048
  10. SODIUM BICARBONATE [Concomitant]
     Active Substance: SODIUM BICARBONATE
     Dosage: 2 DF, QD (AT NOON) (1300 MG)
     Route: 048
  11. SODIUM BICARBONATE [Concomitant]
     Active Substance: SODIUM BICARBONATE
     Dosage: 2 DF, QD (IN THE EVENING) (1300 MG)
     Route: 048
  12. SODIUM BICARBONATE [Concomitant]
     Active Substance: SODIUM BICARBONATE
     Dosage: 2 DF, QD (BEFORE BEDTIME) (1300 MG)
     Route: 048
  13. COREG [Concomitant]
     Active Substance: CARVEDILOL
     Indication: Product used for unknown indication
     Dosage: 8 DF, QD (IN THE MORNING) (WITH MEALS)
     Route: 048
     Dates: start: 20240724, end: 20240724
  14. COREG [Concomitant]
     Active Substance: CARVEDILOL
     Dosage: 8 DF, QD (IN THE EVENING) (WITH MEALS)
     Route: 048
     Dates: start: 20240724, end: 20240724
  15. COREG [Concomitant]
     Active Substance: CARVEDILOL
     Dosage: 12.5 MG, BID (WITH MEALS)
     Route: 048

REACTIONS (3)
  - End stage renal disease [Not Recovered/Not Resolved]
  - White blood cell count increased [Unknown]
  - Nocturia [Unknown]

NARRATIVE: CASE EVENT DATE: 20240425
